FAERS Safety Report 7458772-8 (Version None)
Quarter: 2011Q2

REPORT INFORMATION
  Report Type: 
  Country: None (occurrence: None)
  Receive Date: 20110504
  Receipt Date: 20110429
  Transmission Date: 20111010
  Serious: Yes (Hospitalization, Other)
  Sender: FDA-Public Use
  Company Number: US-AMGEN-USASP2011019016

PATIENT
  Sex: Female
  Weight: 65.2 kg

DRUGS (20)
  1. MORPHINE [Concomitant]
  2. DECADRON [Concomitant]
  3. ULTRAM [Concomitant]
  4. CYCLOSPORINE [Concomitant]
  5. INVANZ [Concomitant]
  6. BENADRYL [Concomitant]
  7. OMEGA 3                            /00931501/ [Concomitant]
  8. NPLATE [Suspect]
     Indication: MYELODYSPLASTIC SYNDROME
     Dosage: 11 A?G/KG, UNK
     Dates: start: 20110201, end: 20110301
  9. CALCIUM [Concomitant]
  10. FLEXERIL [Concomitant]
  11. ESTRADIOL [Concomitant]
  12. FLORINEF [Concomitant]
  13. AMBIEN [Concomitant]
  14. NEUROTIN                           /00949202/ [Concomitant]
  15. NPLATE [Suspect]
     Dates: start: 20110301
  16. HEPARIN [Concomitant]
  17. KLONOPIN [Concomitant]
  18. MULTIVITAMIN                       /00097801/ [Concomitant]
  19. SYNTHROID [Concomitant]
  20. MAGNESIUM [Concomitant]

REACTIONS (8)
  - FEBRILE NEUTROPENIA [None]
  - CELLULITIS [None]
  - PAIN [None]
  - NEUTROPENIA [None]
  - PYREXIA [None]
  - DIVERTICULITIS [None]
  - FEMALE GENITAL TRACT FISTULA [None]
  - BACK PAIN [None]
